FAERS Safety Report 24419067 (Version 2)
Quarter: 2024Q4

REPORT INFORMATION
  Report Type: Report from Study
  Country: US (occurrence: US)
  Receive Date: 20241009
  Receipt Date: 20241018
  Transmission Date: 20250115
  Serious: No
  Sender: ROCHE
  Company Number: US-ROCHE-3459275

PATIENT
  Age: 60 Year
  Sex: Female

DRUGS (2)
  1. CATHFLO ACTIVASE [Suspect]
     Active Substance: ALTEPLASE
     Indication: Complication associated with device
     Dosage: DATE OF SERVICE 11/AUG/2023 AND 15/AUG/2023 AT 6 MG AND 3 MG RESPECTIVELY.
     Route: 065
  2. CATHFLO ACTIVASE [Suspect]
     Active Substance: ALTEPLASE
     Indication: Colon cancer

REACTIONS (2)
  - Off label use [Unknown]
  - No adverse event [Unknown]
